FAERS Safety Report 7789911-7 (Version None)
Quarter: 2011Q3

REPORT INFORMATION
  Report Type: 
  Country: None (occurrence: None)
  Receive Date: 20110930
  Receipt Date: 20110513
  Transmission Date: 20111222
  Serious: No
  Sender: FDA-Public Use
  Company Number: US-ASTRAZENECA-2010SE29131

PATIENT
  Age: 85 Year
  Sex: Female

DRUGS (5)
  1. CARREDILOL [Concomitant]
  2. ARIMIDEX [Suspect]
     Route: 048
     Dates: start: 20060101
  3. TORSEMIDE [Concomitant]
  4. AZOR HYDROXYZINE [Concomitant]
  5. BLOOD PRESSURE MEDICATION [Suspect]
     Route: 065

REACTIONS (7)
  - ASTHENIA [None]
  - MUSCULAR WEAKNESS [None]
  - DIZZINESS [None]
  - COUGH [None]
  - DYSPEPSIA [None]
  - DRUG INTOLERANCE [None]
  - FLUSHING [None]
